FAERS Safety Report 7469440-0 (Version None)
Quarter: 2011Q2

REPORT INFORMATION
  Report Type: 
  Country: None (occurrence: None)
  Receive Date: 20110506
  Receipt Date: 20110506
  Transmission Date: 20111010
  Serious: Yes (Other)
  Sender: FDA-Public Use
  Company Number: None

PATIENT
  Age: 57 Year
  Sex: Male
  Weight: 97.5234 kg

DRUGS (1)
  1. LYRICA [Suspect]
     Indication: INTERVERTEBRAL DISC DEGENERATION
     Dosage: ONE TABLET DAILY PO
     Route: 048
     Dates: start: 20100801, end: 20101001

REACTIONS (3)
  - PNEUMONIA [None]
  - STAPHYLOCOCCAL INFECTION [None]
  - RASH [None]
